FAERS Safety Report 24117845 (Version 2)
Quarter: 2024Q3

REPORT INFORMATION
  Report Type: Report from Study
  Country: US (occurrence: US)
  Receive Date: 20240722
  Receipt Date: 20240823
  Transmission Date: 20241017
  Serious: Yes (Hospitalization, Other)
  Sender: AMGEN
  Company Number: US-AMGEN-USASP2024140870

PATIENT
  Age: 11 Month
  Sex: Male

DRUGS (3)
  1. RAVICTI [Suspect]
     Active Substance: GLYCEROL PHENYLBUTYRATE
     Indication: Argininosuccinate synthetase deficiency
     Dosage: 1.5 MILLILITER, QID (PACKAGING SIZE: 1.1GM/ML)
     Route: 048
     Dates: start: 20230906
  2. RAVICTI [Suspect]
     Active Substance: GLYCEROL PHENYLBUTYRATE
     Dosage: 2.3 MILLILITER, QD 2.3MI IN THE MORNING AND 2MI IN THE AFTERNOON AND IN THE EVENING
     Route: 048
     Dates: start: 202407
  3. RAVICTI [Suspect]
     Active Substance: GLYCEROL PHENYLBUTYRATE
     Dosage: UNK, (TAKE 2.3ML IN THE MORNING. 2ML IN THE AFTERNOON AND 2ML AT NIGHT)
     Route: 065
     Dates: start: 2024

REACTIONS (4)
  - Ammonia increased [Recovering/Resolving]
  - General physical health deterioration [Unknown]
  - Vomiting [Recovering/Resolving]
  - Ammonia abnormal [Unknown]

NARRATIVE: CASE EVENT DATE: 20240710
